FAERS Safety Report 18489085 (Version 1)
Quarter: 2020Q4

REPORT INFORMATION
  Report Type: Report from Study
  Country: US (occurrence: US)
  Receive Date: 20201111
  Receipt Date: 20201111
  Transmission Date: 20210114
  Serious: Yes (Other)
  Sender: FDA-Public Use
  Company Number: US-JNJFOC-20201106059

PATIENT
  Age: 6 Decade
  Sex: Male

DRUGS (11)
  1. STELARA [Suspect]
     Active Substance: USTEKINUMAB
     Indication: CROHN^S DISEASE
     Route: 058
     Dates: start: 20200220
  2. PANTOPRAZOLE [Concomitant]
     Active Substance: PANTOPRAZOLE
  3. DOK [Concomitant]
     Active Substance: DOCUSATE SODIUM
  4. MELOXICAM. [Concomitant]
     Active Substance: MELOXICAM
  5. CELECOXIB. [Concomitant]
     Active Substance: CELECOXIB
  6. TRAMADOL. [Concomitant]
     Active Substance: TRAMADOL
  7. METHSCOPOLAMINE BROMIDE. [Concomitant]
     Active Substance: METHSCOPOLAMINE BROMIDE
  8. POLY-IRON                          /00023502/ [Concomitant]
  9. STELARA [Suspect]
     Active Substance: USTEKINUMAB
  10. PREDNISONE. [Concomitant]
     Active Substance: PREDNISONE
  11. ASPIRIN. [Concomitant]
     Active Substance: ASPIRIN

REACTIONS (2)
  - Crohn^s disease [Not Recovered/Not Resolved]
  - Therapeutic product effect decreased [Unknown]
